FAERS Safety Report 15067237 (Version 4)
Quarter: 2018Q3

REPORT INFORMATION
  Report Type: Report from Study
  Country: DO (occurrence: DO)
  Receive Date: 20180626
  Receipt Date: 20180912
  Transmission Date: 20181010
  Serious: Yes (Hospitalization, Other)
  Sender: FDA-Public Use
  Company Number: DO-SA-2016SA195917

PATIENT
  Age: 38 Year
  Sex: Female
  Weight: 77.2 kg

DRUGS (5)
  1. TERIFLUNOMIDE [Suspect]
     Active Substance: TERIFLUNOMIDE
     Dosage: 14 MG,QD
     Route: 048
     Dates: start: 201611
  2. AVONEX [Concomitant]
     Active Substance: INTERFERON BETA-1A
  3. TERIFLUNOMIDE [Suspect]
     Active Substance: TERIFLUNOMIDE
     Indication: MULTIPLE SCLEROSIS
     Dosage: 14 MG,QD
     Route: 048
     Dates: start: 20160531
  4. LEFLUNOMIDE. [Concomitant]
     Active Substance: LEFLUNOMIDE
  5. TERIFLUNOMIDE [Suspect]
     Active Substance: TERIFLUNOMIDE
     Dosage: .5 DF,QD
     Route: 048
     Dates: start: 2016, end: 2016

REACTIONS (19)
  - Nasal congestion [Recovered/Resolved]
  - Off label use [Unknown]
  - Pyrexia [Unknown]
  - Hypersensitivity [Recovered/Resolved]
  - Asthenia [Unknown]
  - Fatigue [Unknown]
  - Dyspnoea [Unknown]
  - Oedema peripheral [Not Recovered/Not Resolved]
  - Bone pain [Unknown]
  - Alopecia [Recovering/Resolving]
  - Headache [Unknown]
  - Abdominal pain upper [Unknown]
  - Pneumonia [Unknown]
  - Diarrhoea [Not Recovered/Not Resolved]
  - Pain [Unknown]
  - Influenza [Recovered/Resolved]
  - Rhinorrhoea [Recovered/Resolved]
  - Cough [Recovered/Resolved]
  - Neck pain [Recovering/Resolving]

NARRATIVE: CASE EVENT DATE: 2016
